FAERS Safety Report 11920481 (Version 1)
Quarter: 2016Q1

REPORT INFORMATION
  Report Type: Spontaneous
  Country: US (occurrence: US)
  Receive Date: 20160115
  Receipt Date: 20160115
  Transmission Date: 20160526
  Serious: Yes (Other)
  Sender: FDA-Public Use
  Company Number: US-PFIZER INC-2016004283

PATIENT
  Sex: Female

DRUGS (2)
  1. CHAPSTICK MOISTURIZER [Suspect]
     Active Substance: OCTINOXATE\OXYBENZONE\PETROLATUM
     Dosage: UNK
  2. CHAPSTICK LIP BALM [Suspect]
     Active Substance: ISOPROPYL MYRISTATE
     Dosage: UNK

REACTIONS (1)
  - Coeliac disease [Unknown]
